FAERS Safety Report 11146721 (Version 2)
Quarter: 2015Q3

REPORT INFORMATION
  Report Type: Spontaneous
  Country: US (occurrence: US)
  Receive Date: 20150528
  Receipt Date: 20150701
  Transmission Date: 20151125
  Serious: No
  Sender: FDA-Public Use
  Company Number: US-BAYER-2015-279154

PATIENT
  Age: 72 Year
  Sex: Female
  Weight: 46 kg

DRUGS (2)
  1. ALEVE [Suspect]
     Active Substance: NAPROXEN SODIUM
     Indication: BACK PAIN
     Dosage: 2 DF, QD
     Route: 048
     Dates: start: 20150519, end: 20150520
  2. ALEVE PM [Suspect]
     Active Substance: DIPHENHYDRAMINE HYDROCHLORIDE\NAPROXEN SODIUM
     Indication: BACK PAIN
     Dosage: 2 DF, QD
     Route: 048
     Dates: start: 20150519, end: 20150520

REACTIONS (2)
  - Drug ineffective [None]
  - Product use issue [None]

NARRATIVE: CASE EVENT DATE: 20150519
